FAERS Safety Report 22221668 (Version 1)
Quarter: 2023Q2

REPORT INFORMATION
  Report Type: Spontaneous
  Country: FR (occurrence: FR)
  Receive Date: 20230418
  Receipt Date: 20230418
  Transmission Date: 20230722
  Serious: Yes (Death, Other)
  Sender: FDA-Public Use
  Company Number: FR-AFSSAPS-PV2023000353

PATIENT
  Age: 3 Year
  Sex: Male
  Weight: 12 kg

DRUGS (2)
  1. IBUPROFEN [Suspect]
     Active Substance: IBUPROFEN
     Indication: Scarlet fever
     Dosage: UNK
     Route: 048
     Dates: start: 20230313, end: 20230315
  2. AMOXICILLIN [Concomitant]
     Active Substance: AMOXICILLIN
     Indication: Scarlet fever
     Dosage: UNK
     Route: 048
     Dates: start: 20230313

REACTIONS (3)
  - Septic shock [Fatal]
  - Streptococcal sepsis [Fatal]
  - Condition aggravated [Fatal]

NARRATIVE: CASE EVENT DATE: 20230314
